FAERS Safety Report 9240391 (Version 2)
Quarter: 2013Q2

REPORT INFORMATION
  Report Type: Spontaneous
  Country: US (occurrence: US)
  Receive Date: 20130418
  Receipt Date: 20130418
  Transmission Date: 20140414
  Serious: No
  Sender: FDA-Public Use
  Company Number: US-COVIDIEN/TYCO HEALTHCARE/MALLINCKRODT-T200800184

PATIENT
  Age: 35 Year
  Sex: Male

DRUGS (3)
  1. METHADONE DISPERSIBLE (ORANGE FLAVORED) [Suspect]
     Indication: BACK PAIN
     Dosage: 40 MG, 2-2.5 TABLETS PER DAY
  2. METHADONE DISPERSIBLE (ORANGE FLAVORED) [Suspect]
     Dosage: 40 MG, 2-2.5 TABLETS PER DAY
  3. METHADONE [Suspect]
     Dosage: AS HIGH AS 10 MG, 4 TIMES A DAY
     Dates: start: 1999

REACTIONS (10)
  - Chromaturia [Unknown]
  - Urine abnormality [Unknown]
  - Hyperaesthesia [Unknown]
  - Arachnoiditis [Unknown]
  - Withdrawal syndrome [Unknown]
  - Nausea [Unknown]
  - Vomiting [Unknown]
  - Insomnia [Unknown]
  - Abdominal pain [Unknown]
  - Drug ineffective [Unknown]
